FAERS Safety Report 4290554-0 (Version None)
Quarter: 2004Q1

REPORT INFORMATION
  Report Type: 
  Country: None (occurrence: None)
  Receive Date: 20040210
  Receipt Date: 20040127
  Transmission Date: 20041129
  Serious: Yes (Hospitalization, Other)
  Sender: FDA-Public Use
  Company Number: 04-01-0172

PATIENT
  Age: 65 Year
  Sex: Female

DRUGS (1)
  1. CLOZAPINE [Suspect]
     Indication: SCHIZOPHRENIA, PARANOID TYPE
     Dosage: 100-600 MG QD ORAL
     Route: 048
     Dates: start: 20000301, end: 20031201

REACTIONS (10)
  - AGRANULOCYTOSIS [None]
  - APLASTIC ANAEMIA [None]
  - BRONCHITIS [None]
  - CONDITION AGGRAVATED [None]
  - DIARRHOEA [None]
  - DYSKINESIA [None]
  - PNEUMONIA [None]
  - PSYCHOTIC DISORDER [None]
  - SCHIZOPHRENIA [None]
  - SCHIZOPHRENIA, PARANOID TYPE [None]
